FAERS Safety Report 4818969-X (Version None)
Quarter: 2005Q4

REPORT INFORMATION
  Report Type: 
  Country: None (occurrence: None)
  Receive Date: 20051102
  Receipt Date: 20051102
  Transmission Date: 20060501
  Serious: Yes (Hospitalization)
  Sender: FDA-Public Use
  Company Number: None

PATIENT
  Sex: Female
  Weight: 92 kg

DRUGS (11)
  1. TAXOTERE [Suspect]
     Indication: BREAST CANCER
     Dates: start: 20050816, end: 20051025
  2. GLEEVEC [Suspect]
     Indication: BREAST CANCER
     Dates: start: 20050808, end: 20051025
  3. LASIK [Concomitant]
  4. KYTRIL [Concomitant]
  5. COMPAZINE [Concomitant]
  6. ACYCLOVIR [Concomitant]
  7. POTASSIUM [Concomitant]
  8. CLOTRIMAZOLE TROCHES [Concomitant]
  9. CEPHALEXIN [Concomitant]
  10. TRIAMCINOLONE [Concomitant]
  11. ATTERAX [Concomitant]

REACTIONS (5)
  - DEVICE RELATED INFECTION [None]
  - HEART RATE INCREASED [None]
  - MUCOSAL INFLAMMATION [None]
  - ODYNOPHAGIA [None]
  - TREATMENT NONCOMPLIANCE [None]
